FAERS Safety Report 5931162-2 (Version None)
Quarter: 2008Q4

REPORT INFORMATION
  Report Type: 
  Country: None (occurrence: None)
  Receive Date: 20081027
  Receipt Date: 20081017
  Transmission Date: 20090506
  Serious: Yes (Death, Hospitalization)
  Sender: FDA-Public Use
  Company Number: PHHY2008JP23074

PATIENT
  Age: 80 Year
  Sex: Male

DRUGS (4)
  1. EXJADE [Suspect]
     Indication: IRON OVERLOAD
     Dosage: UNK
     Route: 048
     Dates: start: 20080807, end: 20080903
  2. EXJADE [Suspect]
     Indication: SERUM FERRITIN INCREASED
  3. EXJADE [Suspect]
     Indication: MYELOFIBROSIS
  4. EXJADE [Suspect]
     Indication: TRANSFUSION

REACTIONS (2)
  - ACUTE MYELOID LEUKAEMIA [None]
  - BLAST CRISIS IN MYELOGENOUS LEUKAEMIA [None]
